FAERS Safety Report 24995911 (Version 3)
Quarter: 2025Q3

REPORT INFORMATION
  Report Type: Spontaneous
  Country: US (occurrence: US)
  Receive Date: 20250221
  Receipt Date: 20250812
  Transmission Date: 20251020
  Serious: Yes (Other)
  Sender: BRISTOL-MYERS SQUIBB COMPANY
  Company Number: US-BRISTOL-MYERS SQUIBB COMPANY-2025-026366

PATIENT
  Age: 72 Year
  Sex: Male

DRUGS (2)
  1. POMALYST [Suspect]
     Active Substance: POMALIDOMIDE
     Indication: Plasma cell myeloma in remission
     Route: 048
  2. POMALYST [Suspect]
     Active Substance: POMALIDOMIDE
     Dosage: TAKE 1 CAPSULE BY MOUTH EVERY OTHER DAY FOR 28 DAYS
     Route: 048

REACTIONS (7)
  - Inappropriate schedule of product administration [Unknown]
  - Fatigue [Recovering/Resolving]
  - Decreased appetite [Recovering/Resolving]
  - Constipation [Recovering/Resolving]
  - Product dose omission issue [Recovering/Resolving]
  - Off label use [Unknown]
  - Plasma cell myeloma [Not Recovered/Not Resolved]
